FAERS Safety Report 20711308 (Version 1)
Quarter: 2022Q2

REPORT INFORMATION
  Report Type: Spontaneous
  Country: DE (occurrence: DE)
  Receive Date: 20220414
  Receipt Date: 20220414
  Transmission Date: 20220721
  Serious: Yes (Other)
  Sender: FDA-Public Use
  Company Number: DE-ALVOGEN-2022-ALVOGEN-119555

PATIENT
  Sex: Male

DRUGS (3)
  1. LISINOPRIL [Suspect]
     Active Substance: LISINOPRIL
     Indication: Hypertension
     Dosage: UNK
     Route: 065
  2. RIVASTIGMINE [Suspect]
     Active Substance: RIVASTIGMINE
     Indication: Product used for unknown indication
     Route: 065
  3. METFORMIN HYDROCHLORIDE [Concomitant]
     Active Substance: METFORMIN HYDROCHLORIDE
     Indication: Diabetes mellitus
     Dosage: UNK
     Route: 065

REACTIONS (6)
  - Hypertension [Unknown]
  - Drug intolerance [Unknown]
  - Memory impairment [Unknown]
  - Confusional state [Unknown]
  - Dizziness [Unknown]
  - Gait disturbance [Unknown]
